FAERS Safety Report 7552020-6 (Version None)
Quarter: 2011Q2

REPORT INFORMATION
  Report Type: 
  Country: None (occurrence: None)
  Receive Date: 20110616
  Receipt Date: 20110524
  Transmission Date: 20111010
  Serious: Yes (Death)
  Sender: FDA-Public Use
  Company Number: JP-PFIZER INC-2009232343

PATIENT
  Age: 67 Year
  Sex: Female

DRUGS (5)
  1. RHEUMATREX [Suspect]
     Dosage: 6 MG, WEEKLY
     Route: 048
     Dates: start: 20090527, end: 20090528
  2. ETODOLAC [Suspect]
     Dosage: UNK
     Route: 048
     Dates: start: 20090413
  3. ALL OTHER THERAPEUTIC PRODUCTS [Suspect]
     Dosage: UNK
     Route: 048
     Dates: start: 20090601
  4. AZULFIDINE [Suspect]
     Indication: RHEUMATOID ARTHRITIS
     Dosage: UNK
     Route: 048
     Dates: start: 20090420, end: 20090526
  5. FOSAMAX [Concomitant]
     Route: 048
     Dates: start: 20090420

REACTIONS (3)
  - SEPSIS [None]
  - PANCYTOPENIA [None]
  - DISSEMINATED INTRAVASCULAR COAGULATION [None]
